FAERS Safety Report 8114046-3 (Version None)
Quarter: 2012Q1

REPORT INFORMATION
  Report Type: 
  Country: None (occurrence: None)
  Receive Date: 20120203
  Receipt Date: 20120125
  Transmission Date: 20120608
  Serious: Yes (Hospitalization, Other)
  Sender: FDA-Public Use
  Company Number: US-ASTRAZENECA-2010SE19888

PATIENT
  Age: 53 Year
  Sex: Female

DRUGS (1)
  1. NEXIUM [Suspect]
     Route: 048

REACTIONS (16)
  - ULCER HAEMORRHAGE [None]
  - DRUG DOSE OMISSION [None]
  - DYSPEPSIA [None]
  - LACRIMAL DISORDER [None]
  - VISUAL IMPAIRMENT [None]
  - BONE LOSS [None]
  - BLOOD CHOLESTEROL ABNORMAL [None]
  - CARTILAGE INJURY [None]
  - ANAEMIA [None]
  - PSORIASIS [None]
  - MIDDLE INSOMNIA [None]
  - ARTHRITIS [None]
  - DRY EYE [None]
  - EYE INFECTION [None]
  - HYPERSENSITIVITY [None]
  - ARTHROPATHY [None]
